FAERS Safety Report 25761559 (Version 1)
Quarter: 2025Q3

REPORT INFORMATION
  Report Type: Spontaneous
  Country: US (occurrence: US)
  Receive Date: 20250904
  Receipt Date: 20250904
  Transmission Date: 20251020
  Serious: Yes (Other)
  Sender: TEVA
  Company Number: US-TEVA-VS-3366882

PATIENT
  Age: 25 Year
  Sex: Female

DRUGS (4)
  1. CLOTRIMAZOLE [Suspect]
     Active Substance: CLOTRIMAZOLE
     Indication: Fungal infection
     Route: 065
  2. ECULIZUMAB [Suspect]
     Active Substance: ECULIZUMAB
     Indication: Antiacetylcholine receptor antibody positive
     Route: 065
  3. ERTAPENEM [Suspect]
     Active Substance: ERTAPENEM
     Indication: Gonococcal infection
     Route: 065
  4. PYRIDOSTIGMINE [Suspect]
     Active Substance: PYRIDOSTIGMINE
     Indication: Antiacetylcholine receptor antibody positive
     Route: 065

REACTIONS (4)
  - Fungal infection [Recovering/Resolving]
  - Maternal exposure during pregnancy [Unknown]
  - Gonococcal infection [Recovered/Resolved]
  - Live birth [Unknown]
